FAERS Safety Report 12619443 (Version 1)
Quarter: 2016Q3

REPORT INFORMATION
  Report Type: Spontaneous
  Country: US (occurrence: US)
  Receive Date: 20160803
  Receipt Date: 20160803
  Transmission Date: 20161109
  Serious: No
  Sender: FDA-Public Use
  Company Number: US-SHIRE-US201608852

PATIENT
  Age: 8 Year
  Sex: Female

DRUGS (5)
  1. VYVANSE [Suspect]
     Active Substance: LISDEXAMFETAMINE DIMESYLATE
     Indication: SOMNOLENCE
     Dosage: UNK (HALF CONTENTS OF 20 MG CAPSULE), 1X/DAY:QD
     Route: 048
     Dates: start: 201604, end: 201604
  2. CLONIDINE. [Concomitant]
     Active Substance: CLONIDINE
     Indication: AGGRESSION
     Dosage: 0.1 MG, 1X/DAY:QD
     Route: 048
     Dates: start: 201503
  3. VYVANSE [Suspect]
     Active Substance: LISDEXAMFETAMINE DIMESYLATE
     Indication: ATTENTION DEFICIT/HYPERACTIVITY DISORDER
     Dosage: 20 MG, 1X/DAY:QD (5 AM DAILY)
     Route: 048
     Dates: start: 201603, end: 201604
  4. INTUNIV [Concomitant]
     Active Substance: GUANFACINE HYDROCHLORIDE
     Indication: AGGRESSION
     Dosage: 2 MG, 1X/DAY:QD
     Route: 048
     Dates: start: 2014
  5. MELATONIN [Concomitant]
     Active Substance: MELATONIN
     Indication: SLEEP DISORDER
     Dosage: 2.5 - 10 MG, AS REQ^D
     Route: 048

REACTIONS (3)
  - Drug effect increased [Recovered/Resolved]
  - Incorrect dose administered [Recovered/Resolved]
  - Insomnia [Recovered/Resolved]

NARRATIVE: CASE EVENT DATE: 201603
